FAERS Safety Report 13006530 (Version 1)
Quarter: 2016Q4

REPORT INFORMATION
  Report Type: Report from Study
  Country: US (occurrence: US)
  Receive Date: 20161207
  Receipt Date: 20161207
  Transmission Date: 20170207
  Serious: Yes (Hospitalization)
  Sender: FDA-Public Use
  Company Number: US-BIOGEN-2016BI00323982

PATIENT
  Sex: Female

DRUGS (1)
  1. TYSABRI [Suspect]
     Active Substance: NATALIZUMAB
     Indication: MULTIPLE SCLEROSIS
     Route: 065
     Dates: start: 20131118, end: 201610

REACTIONS (8)
  - Arthritis [Unknown]
  - Oesophageal pain [Unknown]
  - Arthropod bite [Unknown]
  - Gallbladder operation [Unknown]
  - Multiple sclerosis [Unknown]
  - Pneumonia [Unknown]
  - Sarcoidosis [Unknown]
  - Immunodeficiency [Unknown]
